FAERS Safety Report 17605910 (Version 2)
Quarter: 2021Q1

REPORT INFORMATION
  Report Type: Spontaneous
  Country: None (occurrence: US)
  Receive Date: 20200331
  Receipt Date: 20210210
  Transmission Date: 20210419
  Serious: Yes (Other)
  Sender: FDA-Public Use
  Company Number: US-INSUD PHARMA-2003US00042

PATIENT
  Age: 34 Year
  Sex: Female
  Weight: 52.15 kg

DRUGS (1)
  1. SLYND [Suspect]
     Active Substance: DROSPIRENONE
     Indication: PRODUCT USED FOR UNKNOWN INDICATION
     Dosage: UNK
     Route: 048

REACTIONS (3)
  - Pregnancy on oral contraceptive [Unknown]
  - Drug ineffective [Unknown]
  - Congenital choroid plexus cyst [Unknown]
